FAERS Safety Report 8182016-5 (Version None)
Quarter: 2012Q1

REPORT INFORMATION
  Report Type: 
  Country: None (occurrence: None)
  Receive Date: 20120302
  Receipt Date: 20120227
  Transmission Date: 20120608
  Serious: Yes (Other)
  Sender: FDA-Public Use
  Company Number: US-GILEAD-2011-0045837

PATIENT
  Age: 32 Year
  Sex: Female

DRUGS (3)
  1. RETROVIR [Concomitant]
     Indication: HIV INFECTION
     Dosage: 2000 MG, QD
     Route: 042
     Dates: start: 20111125
  2. EMTRICITABINE AND TENOFOVIR DISOPROXIL FUMARATE [Suspect]
     Indication: HIV INFECTION
     Dosage: 1 DF, QD
     Route: 048
  3. VIRAMUNE [Concomitant]
     Indication: HIV INFECTION
     Dosage: 400 MG, QD
     Route: 048

REACTIONS (2)
  - PREMATURE DELIVERY [None]
  - PLACENTA PRAEVIA [None]
